FAERS Safety Report 12419614 (Version 1)
Quarter: 2016Q2

REPORT INFORMATION
  Report Type: Spontaneous
  Country: US (occurrence: IT)
  Receive Date: 20160531
  Receipt Date: 20160531
  Transmission Date: 20160815
  Serious: Yes (Hospitalization)
  Sender: FDA-Public Use
  Company Number: US-G+W LABS-GW2016IT000028

PATIENT
  Age: 22 Year
  Sex: Male

DRUGS (3)
  1. METRONIDAZOLE. [Suspect]
     Active Substance: METRONIDAZOLE
     Indication: CHRONIC SINUSITIS
     Dosage: 500 MG, EVERY 8 HOURS
     Route: 042
  2. LEVETIRACETAM. [Concomitant]
     Active Substance: LEVETIRACETAM
     Indication: CONVULSION PROPHYLAXIS
     Dosage: UNK
     Route: 048
  3. CEFTRIAXONE. [Concomitant]
     Active Substance: CEFTRIAXONE
     Indication: CHRONIC SINUSITIS
     Dosage: 2 G, EVERY 12 HOURS
     Route: 042

REACTIONS (8)
  - Lethargy [None]
  - Fall [None]
  - Asthenia [None]
  - Neuropathy peripheral [None]
  - Dysmetria [None]
  - Gait disturbance [None]
  - Pain in extremity [None]
  - Neurotoxicity [Recovered/Resolved]
